FAERS Safety Report 19862952 (Version 1)
Quarter: 2021Q3

REPORT INFORMATION
  Report Type: Spontaneous
  Country: ES (occurrence: ES)
  Receive Date: 20210921
  Receipt Date: 20210921
  Transmission Date: 20211014
  Serious: Yes (Hospitalization)
  Sender: FDA-Public Use
  Company Number: ES-MYLANLABS-2021M1064772

PATIENT
  Age: 54 Year
  Sex: Female

DRUGS (1)
  1. IBUPROFEN. [Suspect]
     Active Substance: IBUPROFEN
     Indication: BACK PAIN
     Dosage: TOOK SEVERAL DOSES OF IBUPROFEN
     Route: 065

REACTIONS (3)
  - Gastric ulcer [Recovered/Resolved]
  - Ascites [Recovered/Resolved]
  - Gastric perforation [Recovered/Resolved]
